FAERS Safety Report 25537119 (Version 1)
Quarter: 2025Q3

REPORT INFORMATION
  Report Type: Spontaneous
  Country: EU (occurrence: EU)
  Receive Date: 20250710
  Receipt Date: 20250710
  Transmission Date: 20251021
  Serious: Yes (Life-Threatening, Hospitalization)
  Sender: TEVA
  Company Number: EU-BoehringerIngelheim-2025-BI-078132

PATIENT
  Age: 53 Year
  Sex: Male

DRUGS (1)
  1. TAMSULOSIN [Suspect]
     Active Substance: TAMSULOSIN
     Indication: Product used for unknown indication
     Route: 065

REACTIONS (4)
  - Blood pressure decreased [Recovered/Resolved]
  - Drug interaction [Unknown]
  - Dyspnoea [Unknown]
  - Loss of consciousness [Unknown]
